FAERS Safety Report 5068487-1 (Version None)
Quarter: 2006Q3

REPORT INFORMATION
  Report Type: 
  Country: None (occurrence: None)
  Receive Date: 20060802
  Receipt Date: 20051019
  Transmission Date: 20061208
  Serious: Yes (Other)
  Sender: FDA-Public Use
  Company Number: US-BRISTOL-MYERS SQUIBB COMPANY-13150180

PATIENT
  Age: 75 Year
  Sex: Female
  Weight: 67 kg

DRUGS (15)
  1. COUMADIN [Suspect]
     Indication: ATRIAL FIBRILLATION
     Dosage: START:5MG QD;2001: DOSE TO 7.5MG QD; FEW YRS AGO: DOSE TO 10MG QD X 5 + 7.5MG X 2 DAYS;OMIT X 1 DAY
     Route: 048
     Dates: start: 20000101
  2. ALPRAZOLAM [Concomitant]
     Dosage: 0.25 MG 1/2 TABLET PRN (DUARION NOT PROVIDED)
     Route: 048
  3. CO-Q-10 [Concomitant]
     Dosage: FOR ^FEW YEARS^
  4. FEOSOL [Concomitant]
     Dosage: 1 TABLET X 1 WEEK, 2 TABS FOR FEW DAYS, THE 3 TABS QD (DURATION NOT PROVIDED)
     Route: 048
  5. FOLTX [Concomitant]
     Dosage: 1 TAB DAILY FOR ^FEW YEARS^
     Route: 048
  6. GLUCOSAMINE [Concomitant]
  7. LIPITOR [Concomitant]
     Indication: BLOOD CHOLESTEROL INCREASED
     Dosage: ON FOR SHORT PERIOD OF TIME. DISCONTINUED DUE TO CAUSING MUSCLE PAINS.
  8. NORVASC [Concomitant]
  9. OMEGA-3 [Concomitant]
     Dosage: FOR 7 TO 8 MONTHS
  10. TENORMIN [Concomitant]
  11. ACETAMINOPHEN [Concomitant]
     Dosage: DOSE/DURATION NOT PROVIDED
  12. VITAMIN B-12 [Concomitant]
  13. ZETIA [Concomitant]
  14. GARLIC [Concomitant]
  15. IRON [Concomitant]

REACTIONS (5)
  - BLOOD PRESSURE INCREASED [None]
  - CONTUSION [None]
  - HEADACHE [None]
  - INTERNATIONAL NORMALISED RATIO FLUCTUATION [None]
  - TRANSIENT ISCHAEMIC ATTACK [None]
